FAERS Safety Report 9236393 (Version 1)
Quarter: 2013Q2

REPORT INFORMATION
  Report Type: Other
  Country: US (occurrence: US)
  Receive Date: 20130417
  Receipt Date: 20130417
  Transmission Date: 20140414
  Serious: Yes (Hospitalization)
  Sender: FDA-Public Use
  Company Number: US-NAPPMUNDI-GBR-2013-0013663

PATIENT
  Age: 35 Year
  Sex: Female

DRUGS (4)
  1. HYDROMORPHONE HCL INJECTABLE [Suspect]
     Indication: PAIN
     Dosage: 33 MG, SINGLE
     Route: 042
  2. KETOROLAC [Concomitant]
     Indication: ANALGESIC THERAPY
     Route: 042
  3. DEXMEDETOMIDINE [Concomitant]
     Indication: ANALGESIC THERAPY
  4. PROPOFOL [Concomitant]
     Dosage: 10 ML/HR, UNK

REACTIONS (4)
  - Abdominal compartment syndrome [Recovered/Resolved]
  - Pain [Recovering/Resolving]
  - Ileus [Recovering/Resolving]
  - Lung disorder [Recovered/Resolved]
